FAERS Safety Report 23365871 (Version 1)
Quarter: 2024Q1

REPORT INFORMATION
  Report Type: Spontaneous
  Country: GB (occurrence: GB)
  Receive Date: 20240104
  Receipt Date: 20240104
  Transmission Date: 20240410
  Serious: Yes (Other)
  Sender: FDA-Public Use
  Company Number: None

PATIENT
  Age: 61 Year
  Weight: 95 kg

DRUGS (24)
  1. TRAMADOL [Suspect]
     Active Substance: TRAMADOL\TRAMADOL HYDROCHLORIDE
     Dosage: TAKE 1-2 WHEN REQUIRED FOUR TIMES A DAY FOR?FOR
     Route: 065
     Dates: start: 20090407
  2. HYDROXOCOBALAMIN [Concomitant]
     Active Substance: HYDROXOCOBALAMIN
     Dates: start: 20160304, end: 20231114
  3. FERROUS SULFATE [Concomitant]
     Active Substance: FERROUS SULFATE
     Dates: start: 20150618
  4. ADCAL [Concomitant]
     Dosage: IN EVENING
     Dates: start: 20150618
  5. FOLIC ACID\IRON\MINERALS\VITAMINS [Concomitant]
     Active Substance: FOLIC ACID\IRON\MINERALS\VITAMINS
     Dosage: 1-2 DAILY
     Dates: start: 20150323, end: 20231114
  6. CYCLIZINE [Concomitant]
     Active Substance: CYCLIZINE
     Dosage: TIME INTERVAL: AS NECESSARY: THREE TIMES DAILY FOR SI
     Dates: start: 20170125, end: 20231114
  7. ALBUTEROL [Concomitant]
     Active Substance: ALBUTEROL
     Dosage: TIME INTERVAL: AS NECESSARY
     Route: 055
     Dates: start: 20081231, end: 20231114
  8. CHOLECALCIFEROL [Concomitant]
     Active Substance: CHOLECALCIFEROL
     Dates: start: 20150323, end: 20231114
  9. PROCHLORPERAZINE [Concomitant]
     Active Substance: PROCHLORPERAZINE
     Dosage: TIME INTERVAL: AS NECESSARY: THREE TIMES A DAY
     Dates: start: 20210617, end: 20231114
  10. PREGABALIN [Concomitant]
     Active Substance: PREGABALIN
     Dosage: TAKE ONE IN THE MORNING AND TWO AT NIGHT
     Dates: start: 20221212
  11. SERTRALINE [Concomitant]
     Active Substance: SERTRALINE HYDROCHLORIDE
     Dates: start: 20120213, end: 20231114
  12. QVAR [Concomitant]
     Active Substance: BECLOMETHASONE DIPROPIONATE
     Route: 055
     Dates: start: 20100121, end: 20231114
  13. COCODAMOL [Concomitant]
     Active Substance: ACETAMINOPHEN\CODEINE PHOSPHATE
     Dosage: TAKE 1 OR 2 4 TIMES/DAY WHEN REQUIRED (MAX 8 IN
     Dates: start: 20081231, end: 20231114
  14. OMEPRAZOLE [Concomitant]
     Active Substance: OMEPRAZOLE
     Dates: start: 20150317
  15. CHOLECALCIFEROL [Concomitant]
     Active Substance: CHOLECALCIFEROL
     Dates: start: 20150622, end: 20231114
  16. IBUPROFEN [Concomitant]
     Active Substance: IBUPROFEN
     Dosage: TAKE 1 OR 2 THREE TIMES DAILY AFTER FOOD. STOP
     Dates: start: 20120529, end: 20231114
  17. TRIMETHOPRIM [Concomitant]
     Active Substance: TRIMETHOPRIM
     Dates: start: 20150928, end: 20231114
  18. BUPRENORPHINE [Concomitant]
     Active Substance: BUPRENORPHINE
     Dosage: AS DIRECTED. REMOVE O
     Dates: start: 20230511
  19. MORPHINE SULFATE [Concomitant]
     Active Substance: MORPHINE SULFATE
     Dosage: TIME INTERVAL: AS NECESSARY: FOUR TIMES A DAY
     Dates: start: 20151223, end: 20231114
  20. DIAZEPAM [Concomitant]
     Active Substance: DIAZEPAM
     Dosage: AS DIRECTED 1 AT NIGHT BUT CAN INCREASE TO TWO
     Dates: start: 20100121, end: 20231114
  21. DICLOFENAC SODIUM [Concomitant]
     Active Substance: DICLOFENAC\DICLOFENAC SODIUM
     Dosage: TIME INTERVAL: 0.33333333 DAYS
     Dates: start: 20081231, end: 20231114
  22. HYDROXYCHLOROQUINE SULFATE [Concomitant]
     Active Substance: HYDROXYCHLOROQUINE SULFATE
     Dosage: 2 NOCTE3
     Dates: start: 20121227, end: 20231114
  23. ACETAMINOPHEN\CODEINE PHOSPHATE [Concomitant]
     Active Substance: ACETAMINOPHEN\CODEINE PHOSPHATE
     Dates: start: 20231109, end: 20231110
  24. COMIRNATY (TOZINAMERAN) [Concomitant]
     Active Substance: TOZINAMERAN
     Indication: COVID-19 immunisation
     Dosage: (QUALIFIER VALUE)
     Route: 030
     Dates: start: 20230926, end: 20230926

REACTIONS (2)
  - Hallucination [Recovered/Resolved]
  - Drug hypersensitivity [Recovered/Resolved]
